FAERS Safety Report 4917965-1 (Version None)
Quarter: 2006Q1

REPORT INFORMATION
  Report Type: 
  Country: None (occurrence: None)
  Receive Date: 20060221
  Receipt Date: 20051011
  Transmission Date: 20060701
  Serious: Yes (Hospitalization)
  Sender: FDA-Public Use
  Company Number: US-MERCK-0510USA06658

PATIENT
  Age: 52 Year
  Sex: Male

DRUGS (6)
  1. VIOXX [Suspect]
     Indication: ARTHRALGIA
     Route: 048
     Dates: start: 20010301, end: 20040901
  2. TOPROL-XL [Suspect]
     Indication: HYPERTENSION
     Route: 048
  3. PRINIVIL [Concomitant]
     Route: 048
  4. PAXIL [Concomitant]
     Route: 065
  5. PROTONIX [Concomitant]
     Route: 065
  6. TYLENOL [Concomitant]
     Route: 065

REACTIONS (16)
  - BARRETT'S OESOPHAGUS [None]
  - BRADYCARDIA [None]
  - CEREBROVASCULAR DISORDER [None]
  - DIFFICULTY IN WALKING [None]
  - DUODENITIS [None]
  - GAIT DISTURBANCE [None]
  - GASTROINTESTINAL HAEMORRHAGE [None]
  - HEADACHE [None]
  - HEMIPARESIS [None]
  - HYPERTENSION [None]
  - HYPOAESTHESIA [None]
  - INTERVERTEBRAL DISC PROTRUSION [None]
  - LACUNAR INFARCTION [None]
  - MICROANGIOPATHY [None]
  - SPINAL COLUMN STENOSIS [None]
  - VISION BLURRED [None]
